FAERS Safety Report 11627684 (Version 2)
Quarter: 2015Q4

REPORT INFORMATION
  Report Type: Spontaneous
  Country: BE (occurrence: BE)
  Receive Date: 20151014
  Receipt Date: 20151113
  Transmission Date: 20160304
  Serious: Yes (Other)
  Sender: FDA-Public Use
  Company Number: BE-ROCHE-1644387

PATIENT
  Age: 59 Year
  Sex: Male
  Weight: 74.5 kg

DRUGS (11)
  1. ACETYLCYSTEINE. [Concomitant]
     Active Substance: ACETYLCYSTEINE
     Route: 065
     Dates: start: 2011
  2. MABTHERA [Suspect]
     Active Substance: RITUXIMAB
     Indication: INTERSTITIAL LUNG DISEASE
  3. ADALAT [Concomitant]
     Active Substance: NIFEDIPINE
     Indication: RAYNAUD^S PHENOMENON
     Route: 048
     Dates: start: 20110630
  4. PARACODINE [Concomitant]
     Active Substance: DIHYDROCODEINE BITARTRATE
     Dosage: 2 TIMES APPROXIMATLY IF NEEDED
     Route: 065
  5. CELLCEPT [Suspect]
     Active Substance: MYCOPHENOLATE MOFETIL\MYCOPHENOLATE MOFETIL HYDROCHLORIDE
     Indication: INTERSTITIAL LUNG DISEASE
  6. PANTOMED (PANTOPRAZOLE) [Concomitant]
     Indication: DYSPEPSIA
     Route: 048
     Dates: start: 20110630
  7. ALENDRONAT [Concomitant]
     Active Substance: ALENDRONATE SODIUM
     Indication: OSTEOPOROSIS
     Route: 065
     Dates: start: 20121015
  8. CELLCEPT [Suspect]
     Active Substance: MYCOPHENOLATE MOFETIL\MYCOPHENOLATE MOFETIL HYDROCHLORIDE
     Indication: SYSTEMIC SCLEROSIS
     Route: 048
     Dates: start: 20130610, end: 20130816
  9. MABTHERA [Suspect]
     Active Substance: RITUXIMAB
     Indication: SYSTEMIC SCLEROSIS
     Route: 065
  10. PRENISOLONE [Suspect]
     Active Substance: PREDNISOLONE
     Indication: PULMONARY FIBROSIS
     Route: 048
     Dates: start: 20130715
  11. TRACLEER [Suspect]
     Active Substance: BOSENTAN
     Indication: SKIN ULCER
     Route: 048
     Dates: start: 20130715

REACTIONS (5)
  - Disease recurrence [None]
  - Anaphylactic reaction [Recovered/Resolved]
  - Off label use [Unknown]
  - Angioedema [Recovered/Resolved]
  - Systemic sclerosis [Not Recovered/Not Resolved]

NARRATIVE: CASE EVENT DATE: 20130816
